FAERS Safety Report 25166034 (Version 1)
Quarter: 2025Q2

REPORT INFORMATION
  Report Type: Spontaneous
  Country: VN (occurrence: VN)
  Receive Date: 20250407
  Receipt Date: 20250407
  Transmission Date: 20250716
  Serious: Yes (Hospitalization, Other)
  Sender: ROCHE
  Company Number: VN-ROCHE-10000247783

PATIENT
  Age: 41 Year
  Sex: Male

DRUGS (1)
  1. ALECTINIB [Suspect]
     Active Substance: ALECTINIB
     Indication: Non-small cell lung cancer
     Dosage: 8 TABLETS
     Route: 065

REACTIONS (4)
  - Lung neoplasm [Unknown]
  - Lung opacity [Unknown]
  - Blood bilirubin increased [Unknown]
  - Cough [Unknown]
